FAERS Safety Report 11804874 (Version 2)
Quarter: 2016Q1

REPORT INFORMATION
  Report Type: Spontaneous
  Country: US (occurrence: US)
  Receive Date: 20151205
  Receipt Date: 20160119
  Transmission Date: 20160525
  Serious: No
  Sender: FDA-Public Use
  Company Number: US-GLAXOSMITHKLINE-US2015GSK159957

PATIENT
  Age: 50 Year
  Sex: Female

DRUGS (1)
  1. TANZEUM [Suspect]
     Active Substance: ALBIGLUTIDE
     Indication: TYPE 2 DIABETES MELLITUS
     Dosage: 30 MG, WE
     Route: 042
     Dates: start: 201506

REACTIONS (6)
  - Blood glucose increased [Unknown]
  - Headache [Unknown]
  - Device use error [Unknown]
  - Device leakage [Unknown]
  - Exposure via direct contact [Unknown]
  - Product quality issue [Unknown]

NARRATIVE: CASE EVENT DATE: 20151106
